FAERS Safety Report 5343567-1 (Version None)
Quarter: 2007Q2

REPORT INFORMATION
  Report Type: 
  Country: None (occurrence: None)
  Receive Date: 20070604
  Receipt Date: 20070522
  Transmission Date: 20071010
  Serious: Yes (Other)
  Sender: FDA-Public Use
  Company Number: AU-ELI_LILLY_AND_COMPANY-AU200705007182

PATIENT
  Age: 32 Year
  Sex: Female

DRUGS (2)
  1. OLANZAPINE [Suspect]
     Indication: PSYCHOTIC DISORDER
     Dosage: 20 MG, DAILY (1/D)
     Dates: start: 20060501, end: 20060101
  2. CLOZAPINE [Interacting]
     Indication: SCHIZOPHRENIA
     Dates: start: 20031001, end: 20060501

REACTIONS (3)
  - DRUG INTERACTION [None]
  - NEUTROPENIA [None]
  - WHITE BLOOD CELL COUNT DECREASED [None]
